FAERS Safety Report 15858729 (Version 1)
Quarter: 2019Q1

REPORT INFORMATION
  Report Type: Spontaneous
  Country: GB (occurrence: GB)
  Receive Date: 20190123
  Receipt Date: 20190123
  Transmission Date: 20190417
  Serious: Yes (Hospitalization, Other)
  Sender: FDA-Public Use
  Company Number: GB-PFIZER INC-2019028885

PATIENT
  Age: 36 Year
  Sex: Female

DRUGS (1)
  1. PREGABALIN. [Suspect]
     Active Substance: PREGABALIN
     Indication: ANXIETY
     Dosage: UNK UNK, 2X/DAY

REACTIONS (13)
  - Withdrawal syndrome [Unknown]
  - Feeling abnormal [Unknown]
  - Malaise [Unknown]
  - Nausea [Unknown]
  - Back pain [Unknown]
  - Hot flush [Unknown]
  - Mental disorder [Unknown]
  - Drug dependence [Unknown]
  - Drug abuse [Unknown]
  - Feeling cold [Unknown]
  - Headache [Unknown]
  - Euphoric mood [Unknown]
  - Sedation [Unknown]
